FAERS Safety Report 21015738 (Version 1)
Quarter: 2022Q3

REPORT INFORMATION
  Report Type: Spontaneous
  Country: US (occurrence: US)
  Receive Date: 20220628
  Receipt Date: 20220628
  Transmission Date: 20221026
  Serious: No
  Sender: FDA-Public Use
  Company Number: US-NOVARTISTESTPH-NVSC2022US146860

PATIENT
  Sex: Female

DRUGS (1)
  1. XIIDRA [Suspect]
     Active Substance: LIFITEGRAST
     Indication: Product used for unknown indication
     Dosage: 5 % (2 XS DAILY)
     Route: 065

REACTIONS (4)
  - Vision blurred [Unknown]
  - Lacrimation increased [Unknown]
  - Product packaging issue [Unknown]
  - Product use complaint [Unknown]
